FAERS Safety Report 6872174-4 (Version None)
Quarter: 2010Q2

REPORT INFORMATION
  Report Type: 
  Country: None (occurrence: None)
  Receive Date: 20100528
  Receipt Date: 20100201
  Transmission Date: 20101027
  Serious: No
  Sender: FDA-Public Use
  Company Number: 2010013449

PATIENT
  Sex: Female

DRUGS (1)
  1. TOVIAZ (FESOTERODINE) MODIFIED-RELEASE TABLET [Suspect]
     Indication: POLLAKIURIA
     Dosage: 8 MG

REACTIONS (1)
  - DRUG INEFFECTIVE [None]
